FAERS Safety Report 9229109 (Version 2)
Quarter: 2013Q2

REPORT INFORMATION
  Report Type: Spontaneous
  Country: US (occurrence: US)
  Receive Date: 20130412
  Receipt Date: 20130604
  Transmission Date: 20140414
  Serious: No
  Sender: FDA-Public Use
  Company Number: US-ASTRAZENECA-2013SE22176

PATIENT
  Age: 72 Year
  Sex: Male

DRUGS (1)
  1. SEROQUEL [Suspect]
     Indication: SLEEP DISORDER
     Dosage: GENERIC
     Route: 048
     Dates: start: 201208

REACTIONS (2)
  - Laboratory test abnormal [Unknown]
  - Off label use [Unknown]
